FAERS Safety Report 11681316 (Version 3)
Quarter: 2015Q4

REPORT INFORMATION
  Report Type: Spontaneous
  Country: US (occurrence: US)
  Receive Date: 20151027
  Receipt Date: 20151110
  Transmission Date: 20160304
  Serious: No
  Sender: FDA-Public Use
  Company Number: US-ELI_LILLY_AND_COMPANY-US201007001681

PATIENT
  Sex: Female

DRUGS (1)
  1. FORTEO [Suspect]
     Active Substance: TERIPARATIDE
     Indication: OSTEOPOROSIS
     Dosage: 20 UG, DAILY (1/D)
     Route: 065
     Dates: start: 20100401

REACTIONS (11)
  - Hypoacusis [Unknown]
  - Blood cholesterol increased [Unknown]
  - Dementia Alzheimer^s type [Not Recovered/Not Resolved]
  - Mental impairment [Not Recovered/Not Resolved]
  - Arthropathy [Unknown]
  - Personality change [Unknown]
  - Peripheral swelling [Unknown]
  - Low density lipoprotein increased [Unknown]
  - Peripheral swelling [Recovering/Resolving]
  - Blood creatinine decreased [Unknown]
  - Pain in extremity [Not Recovered/Not Resolved]

NARRATIVE: CASE EVENT DATE: 2010
